FAERS Safety Report 9168129 (Version 1)
Quarter: 2013Q1

REPORT INFORMATION
  Report Type: Spontaneous
  Country: US (occurrence: None)
  Receive Date: 20130313
  Receipt Date: 20130313
  Transmission Date: 20140127
  Serious: Yes (Death)
  Sender: FDA-Public Use
  Company Number: 2013-061

PATIENT
  Age: 42 Year
  Sex: Female

DRUGS (1)
  1. FAZACLO (CLOZAPINE, USP) ODT (ORAL DISINTEGRATING TABLET) [Suspect]
     Dosage: 25-200 MG, QD, ORAL
     Dates: start: 20070615, end: 20130208

REACTIONS (1)
  - Sudden death [None]
